FAERS Safety Report 7098310-5 (Version None)
Quarter: 2010Q4

REPORT INFORMATION
  Report Type: 
  Country: None (occurrence: None)
  Receive Date: 20101112
  Receipt Date: 20101104
  Transmission Date: 20110411
  Serious: Yes (Other)
  Sender: FDA-Public Use
  Company Number: US-PFIZER INC-2010141040

PATIENT
  Sex: Female
  Weight: 61.224 kg

DRUGS (9)
  1. TOVIAZ [Suspect]
     Indication: HYPERTONIC BLADDER
     Dosage: UNK
     Route: 048
     Dates: start: 20101031, end: 20101103
  2. LISINOPRIL [Concomitant]
     Indication: HYPERTENSION
     Dosage: UNK
  3. CALTRATE + D [Concomitant]
     Indication: OSTEOPOROSIS
     Dosage: UNK
  4. AMPYRA [Concomitant]
     Dosage: UNK
  5. IMURAN [Concomitant]
     Dosage: UNK
  6. ACTONEL [Concomitant]
     Dosage: 150 MG, UNK
  7. ASCORBIC ACID [Concomitant]
     Dosage: UNK
  8. VITAMIN D [Concomitant]
     Dosage: UNK
  9. VITAMIN B [Concomitant]
     Dosage: UNK

REACTIONS (2)
  - CONSTIPATION [None]
  - INCORRECT DOSE ADMINISTERED [None]
